FAERS Safety Report 7736460-8 (Version None)
Quarter: 2011Q3

REPORT INFORMATION
  Report Type: 
  Country: None (occurrence: None)
  Receive Date: 20110908
  Receipt Date: 20110906
  Transmission Date: 20111222
  Serious: Yes (Death)
  Sender: FDA-Public Use
  Company Number: US-B.I. PHARMACEUTICALS,INC./RIDGEFIELD-2011-BP-21591BP

PATIENT
  Sex: Female

DRUGS (11)
  1. SPIRIVA [Suspect]
     Dosage: 18 MCG
     Route: 055
  2. LYRICA [Concomitant]
  3. IPRATROP. BROM/ALBUT [Concomitant]
  4. LANOXIN [Concomitant]
  5. AZELASTINE HCL [Concomitant]
  6. AZITHROMYCIN [Concomitant]
  7. ADVAIR DISKUS 100/50 [Concomitant]
  8. PREDNISONE [Concomitant]
  9. DILTIAZEM [Concomitant]
  10. SIMVASTATIN [Concomitant]
  11. CETIRIZINE HCL [Concomitant]

REACTIONS (1)
  - DEATH [None]
